FAERS Safety Report 5494828-7 (Version None)
Quarter: 2007Q4

REPORT INFORMATION
  Report Type: 
  Country: None (occurrence: None)
  Receive Date: 20071024
  Receipt Date: 20071018
  Transmission Date: 20080405
  Serious: Yes (Other)
  Sender: FDA-Public Use
  Company Number: US-GENENTECH-231428

PATIENT
  Sex: Male
  Weight: 78.912 kg

DRUGS (6)
  1. XOLAIR [Suspect]
     Indication: ASTHMA
     Dosage: 300 MG, Q2W
     Route: 058
     Dates: start: 20040312, end: 20041221
  2. XOLAIR [Suspect]
     Indication: RHINITIS ALLERGIC
  3. ALLEGRA [Concomitant]
     Indication: DRUG USE FOR UNKNOWN INDICATION
  4. ADVAIR DISKUS 100/50 [Concomitant]
     Indication: DRUG USE FOR UNKNOWN INDICATION
  5. FLONASE [Concomitant]
     Indication: DRUG USE FOR UNKNOWN INDICATION
  6. SINGULAIR [Concomitant]
     Indication: DRUG USE FOR UNKNOWN INDICATION

REACTIONS (1)
  - COLONIC POLYP [None]
